FAERS Safety Report 7198770-5 (Version None)
Quarter: 2010Q4

REPORT INFORMATION
  Report Type: 
  Country: None (occurrence: None)
  Receive Date: 20101227
  Receipt Date: 20100811
  Transmission Date: 20110411
  Serious: No
  Sender: FDA-Public Use
  Company Number: US-ABBOTT-10P-163-0647337-00

PATIENT
  Sex: Male
  Weight: 136.2 kg

DRUGS (9)
  1. LUPRON DEPOT [Suspect]
     Indication: PROSTATE CANCER
     Route: 050
     Dates: start: 20090701
  2. NIASPAN [Suspect]
     Indication: PRODUCT USED FOR UNKNOWN INDICATION
  3. LIPITOR [Concomitant]
     Indication: BLOOD CHOLESTEROL INCREASED
     Route: 048
  4. VALTURNA 300/320 [Concomitant]
     Indication: HYPERTENSION
     Route: 048
  5. GLIPIZIDE [Concomitant]
     Indication: DIABETES MELLITUS
     Route: 048
  6. METFORMIN HCL [Concomitant]
     Indication: DIABETES MELLITUS
     Route: 048
  7. PLAVIX [Concomitant]
     Indication: STENT PLACEMENT
     Route: 048
  8. FLOMAX [Concomitant]
     Indication: URINE FLOW DECREASED
     Route: 048
  9. TAMSULOSIN [Concomitant]
     Indication: URINARY TRACT DISORDER
     Route: 048

REACTIONS (6)
  - CHILLS [None]
  - DIZZINESS [None]
  - ERECTILE DYSFUNCTION [None]
  - HOT FLUSH [None]
  - HYPERHIDROSIS [None]
  - POLLAKIURIA [None]
